FAERS Safety Report 14441349 (Version 5)
Quarter: 2018Q3

REPORT INFORMATION
  Report Type: Spontaneous
  Country: JP (occurrence: JP)
  Receive Date: 20180125
  Receipt Date: 20180918
  Transmission Date: 20181010
  Serious: Yes (Hospitalization, Other)
  Sender: FDA-Public Use
  Company Number: JP-VIIV HEALTHCARE LIMITED-JP2018JPN010471

PATIENT
  Age: 41 Year
  Sex: Male

DRUGS (5)
  1. STOCRIN [Concomitant]
     Active Substance: EFAVIRENZ
     Dosage: UNK
     Dates: start: 20071218, end: 20170508
  2. TIVICAY [Suspect]
     Active Substance: DOLUTEGRAVIR SODIUM
     Indication: HIV INFECTION
     Dosage: 50 MG, 1D
     Route: 048
     Dates: start: 20170508, end: 20170906
  3. COMBIVIR [Suspect]
     Active Substance: LAMIVUDINE\ZIDOVUDINE
     Indication: HIV INFECTION
     Dosage: UNK
     Route: 048
  4. STOCRIN [Concomitant]
     Active Substance: EFAVIRENZ
     Dosage: UNK
     Dates: start: 20170906
  5. TRUVADA [Concomitant]
     Active Substance: EMTRICITABINE\TENOFOVIR DISOPROXIL FUMARATE
     Dosage: UNK
     Dates: start: 20110326

REACTIONS (4)
  - Haemorrhage subcutaneous [Unknown]
  - Immune thrombocytopenic purpura [Recovered/Resolved]
  - Hepatic function abnormal [Recovered/Resolved]
  - Malaise [Unknown]

NARRATIVE: CASE EVENT DATE: 20170705
